FAERS Safety Report 5129611-5 (Version None)
Quarter: 2006Q4

REPORT INFORMATION
  Report Type: 
  Country: None (occurrence: None)
  Receive Date: 20061018
  Receipt Date: 20060718
  Transmission Date: 20070319
  Serious: Yes (Hospitalization)
  Sender: FDA-Public Use
  Company Number: GB-ROCHE-455813

PATIENT
  Age: 131 Week
  Sex: Male

DRUGS (3)
  1. DACLIZUMAB [Suspect]
     Route: 065
  2. MYCOPHENOLATE MOFETIL [Suspect]
     Route: 048
     Dates: start: 20060415
  3. FK506 [Suspect]
     Route: 048
     Dates: start: 20060415

REACTIONS (1)
  - CYTOMEGALOVIRUS INFECTION [None]
